FAERS Safety Report 8208188-1 (Version None)
Quarter: 2012Q1

REPORT INFORMATION
  Report Type: 
  Country: None (occurrence: None)
  Receive Date: 20120314
  Receipt Date: 20120308
  Transmission Date: 20120608
  Serious: Yes (Death, Hospitalization)
  Sender: FDA-Public Use
  Company Number: PHHO2011FR15242

PATIENT
  Sex: Male
  Weight: 66 kg

DRUGS (7)
  1. PREVISCAN [Concomitant]
     Indication: MYOCARDIAL INFARCTION
     Dosage: 70 MG, UNK
     Dates: start: 20110209
  2. BLINDED ALISKIREN [Suspect]
     Indication: CARDIAC FAILURE
     Dosage: CODE NOT BROKEN
     Route: 048
     Dates: start: 20110601, end: 20110920
  3. CLOPIDOGREL [Concomitant]
     Indication: MYOCARDIAL INFARCTION
     Dosage: 75 MG, UNK
     Dates: start: 20000930
  4. NEBIVOLOL HCL [Concomitant]
     Indication: MYOCARDIAL INFARCTION
     Dosage: 2.5 MG, UNK
     Dates: start: 20110209
  5. ENALAPRIL MALEATE [Suspect]
     Indication: CARDIAC FAILURE
     Dosage: CODE NOT BROKEN
     Route: 048
     Dates: start: 20110601, end: 20110920
  6. ATORVASTATIN [Concomitant]
     Indication: MYOCARDIAL INFARCTION
     Dosage: 40 MG, UNK
     Dates: start: 20101218
  7. BLINDED NO TREATMENT RECEIVED [Suspect]
     Indication: CARDIAC FAILURE
     Dosage: CODE NOT BROKEN
     Route: 048
     Dates: start: 20110601, end: 20110920

REACTIONS (3)
  - DEATH [None]
  - CONDITION AGGRAVATED [None]
  - OEDEMA PERIPHERAL [None]
